FAERS Safety Report 6138150-4 (Version None)
Quarter: 2009Q1

REPORT INFORMATION
  Report Type: 
  Country: None (occurrence: None)
  Receive Date: 20090327
  Receipt Date: 20090316
  Transmission Date: 20090719
  Serious: Yes (Other)
  Sender: FDA-Public Use
  Company Number: 189066USA

PATIENT
  Age: 72 Year
  Sex: Female

DRUGS (2)
  1. BISOPROLOL [Suspect]
     Indication: BLOOD PRESSURE MANAGEMENT
     Dates: end: 20080101
  2. EXFORGE [Suspect]
     Dates: start: 20080101

REACTIONS (6)
  - ABDOMINAL PAIN UPPER [None]
  - BARRETT'S OESOPHAGUS [None]
  - DEPRESSION [None]
  - DRUG INEFFECTIVE [None]
  - INSOMNIA [None]
  - SUICIDAL IDEATION [None]
